FAERS Safety Report 6195033-1 (Version None)
Quarter: 2009Q2

REPORT INFORMATION
  Report Type: 
  Country: None (occurrence: None)
  Receive Date: 20090515
  Receipt Date: 20090515
  Transmission Date: 20091009
  Serious: Yes (Hospitalization)
  Sender: FDA-Public Use
  Company Number: None

PATIENT
  Sex: Female
  Weight: 68.0396 kg

DRUGS (13)
  1. ACETAMINOPHEN AND HYDROCODONE BITARTRATE [Suspect]
     Indication: PAIN MANAGEMENT
     Dosage: 1 TABLET EVERY 4 HOURS PRN PO
     Route: 048
     Dates: start: 20090416, end: 20090424
  2. MORPHINE [Suspect]
     Indication: PAIN MANAGEMENT
     Dosage: 1-4 MG PCA Q1 H PRN IV
     Route: 042
     Dates: start: 20090416, end: 20090424
  3. PANTOPRAZOLE SODIUM [Concomitant]
  4. TYLENOL [Concomitant]
  5. ONDANSETRON [Concomitant]
  6. DUCASATE [Concomitant]
  7. DEXAMETHASONE ORAL TAPER [Concomitant]
  8. DIVALPROEX SODIUM [Concomitant]
  9. ZOLPIDEM [Concomitant]
  10. CEFEPIME [Concomitant]
  11. VANCOMYCIN HCL [Concomitant]
  12. INSULIN [Concomitant]
  13. IBUPROFEN [Concomitant]

REACTIONS (1)
  - PAROTITIS [None]
